FAERS Safety Report 20237804 (Version 1)
Quarter: 2021Q4

REPORT INFORMATION
  Report Type: Spontaneous
  Country: US (occurrence: None)
  Receive Date: 20211227
  Receipt Date: 20211227
  Transmission Date: 20220304
  Serious: Yes (Hospitalization)
  Sender: FDA-Public Use
  Company Number: None

PATIENT
  Age: 75 Year
  Sex: Female
  Weight: 77.6 kg

DRUGS (2)
  1. DURVALUMAB [Suspect]
     Active Substance: DURVALUMAB
     Dosage: OTHER FREQUENCY : DAILY FOR 21 DAYS;?
     Route: 042
     Dates: start: 20210907, end: 20211130
  2. LURBINECTEDIN [Suspect]
     Active Substance: LURBINECTEDIN

REACTIONS (4)
  - Dyspnoea [None]
  - Arthralgia [None]
  - Superior vena cava syndrome [None]
  - Telangiectasia [None]

NARRATIVE: CASE EVENT DATE: 20211221
